FAERS Safety Report 22089154 (Version 1)
Quarter: 2023Q1

REPORT INFORMATION
  Report Type: Report from Study
  Country: CO (occurrence: CO)
  Receive Date: 20230313
  Receipt Date: 20230313
  Transmission Date: 20230417
  Serious: Yes (Life-Threatening, Hospitalization, Other)
  Sender: FDA-Public Use
  Company Number: CO-ABBVIE-4336542

PATIENT
  Age: 73 Year
  Sex: Female
  Weight: 64 kg

DRUGS (3)
  1. SKYRIZI [Suspect]
     Active Substance: RISANKIZUMAB-RZAA
     Indication: Psoriatic arthropathy
     Dosage: FORM STRENGTH: 75 MILLIGRAM
     Route: 058
     Dates: start: 20210218
  2. INSULIN NOS [Concomitant]
     Active Substance: INSULIN NOS
     Indication: Diabetes mellitus
     Dosage: FORM STRENGTH: 40 MILLIGRAM?FREQUENCY TEXT: AT NIGHT ON THE ABDOMEN
     Route: 058
     Dates: start: 2018
  3. METFORMIN [Concomitant]
     Active Substance: METFORMIN HYDROCHLORIDE
     Indication: Diabetes mellitus
     Dosage: 1 UNKNOWN?FREQUENCY TEXT: AFTER LUNCH
     Route: 048

REACTIONS (8)
  - Venous occlusion [Recovering/Resolving]
  - Visual impairment [Not Recovered/Not Resolved]
  - Memory impairment [Not Recovered/Not Resolved]
  - Blood glucose increased [Recovering/Resolving]
  - Haemorrhage [Recovering/Resolving]
  - Blood triglycerides abnormal [Unknown]
  - Haematoma [Recovering/Resolving]
  - Vision blurred [Not Recovered/Not Resolved]

NARRATIVE: CASE EVENT DATE: 20221201
